FAERS Safety Report 6141106-9 (Version None)
Quarter: 2009Q2

REPORT INFORMATION
  Report Type: 
  Country: None (occurrence: None)
  Receive Date: 20090402
  Receipt Date: 20090327
  Transmission Date: 20091009
  Serious: Yes (Other)
  Sender: FDA-Public Use
  Company Number: PHHY2009YU11365

PATIENT
  Age: 73 Year
  Sex: Male

DRUGS (1)
  1. EXELON [Suspect]
     Indication: VASCULAR DEMENTIA
     Dosage: 2 X 1.5 MG/DAY
     Route: 048

REACTIONS (1)
  - HEADACHE [None]
